FAERS Safety Report 6081045-5 (Version None)
Quarter: 2009Q1

REPORT INFORMATION
  Report Type: 
  Country: None (occurrence: None)
  Receive Date: 20090217
  Receipt Date: 20090209
  Transmission Date: 20090719
  Serious: Yes (Hospitalization, Disabling, Other)
  Sender: FDA-Public Use
  Company Number: PHHY2008JP31977

PATIENT
  Age: 65 Year
  Sex: Female

DRUGS (5)
  1. ZOMETA [Suspect]
     Indication: METASTASES TO BONE
     Dosage: UNK
     Route: 042
     Dates: end: 20080613
  2. BISPHOSPHONATES [Suspect]
  3. TRINOSIN [Concomitant]
     Dosage: 40 MG, TID
  4. CYANOCOBALAMIN [Concomitant]
     Dosage: 500 UG, TID
  5. ZITHROMAX [Concomitant]
     Dosage: 500 MG, QD

REACTIONS (13)
  - CACHEXIA [None]
  - HYPOAESTHESIA [None]
  - IMPAIRED HEALING [None]
  - MALIGNANT NEOPLASM PROGRESSION [None]
  - OSTEOMYELITIS [None]
  - OSTEONECROSIS [None]
  - PAIN [None]
  - PATHOLOGICAL FRACTURE [None]
  - PURULENT DISCHARGE [None]
  - SWELLING [None]
  - TOOTH EXTRACTION [None]
  - TOOTH LOSS [None]
  - TRIGEMINAL NERVE DISORDER [None]
